FAERS Safety Report 16233915 (Version 1)
Quarter: 2019Q2

REPORT INFORMATION
  Report Type: Spontaneous
  Country: US (occurrence: US)
  Receive Date: 20190423
  Receipt Date: 20190423
  Transmission Date: 20190711
  Serious: Yes (Hospitalization)
  Sender: FDA-Public Use
  Company Number: None

PATIENT
  Age: 33 Year
  Sex: Female
  Weight: 60.75 kg

DRUGS (1)
  1. MONISTAT 1 COMBINATION PACK [Suspect]
     Active Substance: MICONAZOLE NITRATE

REACTIONS (8)
  - Pruritus [None]
  - Burning sensation [None]
  - Dizziness [None]
  - Abdominal pain [None]
  - Presyncope [None]
  - Vulvovaginal pruritus [None]
  - Dyspnoea [None]
  - Vulvovaginal burning sensation [None]

NARRATIVE: CASE EVENT DATE: 20190422
